FAERS Safety Report 4759163-0 (Version None)
Quarter: 2005Q3

REPORT INFORMATION
  Report Type: 
  Country: None (occurrence: None)
  Receive Date: 20050831
  Receipt Date: 20050819
  Transmission Date: 20060218
  Serious: Yes (Disabling)
  Sender: FDA-Public Use
  Company Number: S05-UKI-03004-01

PATIENT
  Age: 73 Year
  Sex: Male

DRUGS (7)
  1. CITALOPRAM HYDROBROMIDE [Suspect]
     Indication: DEPRESSION
     Dosage: 20 MG QD PO
     Route: 048
     Dates: start: 20020201, end: 20050101
  2. CITALOPRAM HYDROBROMIDE [Suspect]
     Indication: DEPRESSION
     Dosage: MG QD PO
     Route: 048
     Dates: start: 20050101
  3. MEMANTINE HCL [Suspect]
     Indication: AGGRESSION
     Dosage: 20 MG QD PO
     Route: 048
     Dates: start: 20030321
  4. MEMANTINE HCL [Suspect]
     Indication: DEMENTIA
     Dosage: 20 MG QD PO
     Route: 048
     Dates: start: 20030321
  5. ASPIRIN [Concomitant]
  6. DIGOXIN [Concomitant]
  7. ZOPICLONE [Concomitant]

REACTIONS (3)
  - AGGRESSION [None]
  - DEMENTIA [None]
  - PLEUROTHOTONUS [None]
